FAERS Safety Report 22165878 (Version 2)
Quarter: 2023Q2

REPORT INFORMATION
  Report Type: Report from Study
  Country: US (occurrence: US)
  Receive Date: 20230403
  Receipt Date: 20230508
  Transmission Date: 20230721
  Serious: Yes (Hospitalization, Other)
  Sender: FDA-Public Use
  Company Number: US-NOVOPROD-1043346

PATIENT
  Age: 53 Year
  Sex: Female
  Weight: 108.4 kg

DRUGS (1)
  1. OZEMPIC [Suspect]
     Active Substance: SEMAGLUTIDE
     Indication: Diabetes mellitus
     Dosage: UNK
     Route: 058

REACTIONS (7)
  - Blood glucose increased [Recovered/Resolved]
  - Device failure [Unknown]
  - Fibrin D dimer increased [Recovered/Resolved]
  - Dehydration [Recovered/Resolved]
  - Eye haematoma [Not Recovered/Not Resolved]
  - Glycosylated haemoglobin increased [Recovered/Resolved]
  - Urinary tract infection [Not Recovered/Not Resolved]

NARRATIVE: CASE EVENT DATE: 20230221
